FAERS Safety Report 7201667-5 (Version None)
Quarter: 2010Q4

REPORT INFORMATION
  Report Type: 
  Country: None (occurrence: None)
  Receive Date: 20101229
  Receipt Date: 20101223
  Transmission Date: 20110411
  Serious: Yes (Death, Hospitalization)
  Sender: FDA-Public Use
  Company Number: CO-ROCHE-728820

PATIENT
  Sex: Female

DRUGS (4)
  1. CELLCEPT [Suspect]
     Dosage: FREQUENCY: EVERY DAY (QD).
     Route: 048
     Dates: start: 20061030
  2. OMEPRAZOLE [Concomitant]
     Dosage: FREQUENCY: EVERY DAY (QD).
     Route: 048
  3. ENALAPRIL MALEATE [Concomitant]
     Dosage: FREQUENCY: EVERY DAY (QD).
     Route: 048
  4. PREDNISOLONE [Concomitant]
     Dosage: FREQUENCY: EVERY DAY (QD).
     Route: 048

REACTIONS (2)
  - RENAL FAILURE [None]
  - URINARY TRACT INFECTION [None]
